FAERS Safety Report 8991986 (Version 1)
Quarter: 2012Q4

REPORT INFORMATION
  Report Type: 
  Country: US (occurrence: US)
  Receive Date: 20121231
  Receipt Date: 20121231
  Transmission Date: 20130627
  Serious: No
  Sender: FDA-Public Use
  Company Number: US-BAYER-2012-135982

PATIENT
  Sex: Female

DRUGS (3)
  1. ALEVE CAPLET/TABLET,MIDOL EXTENDED RELIEF CAPLET [Suspect]
     Dosage: 5 DF, UNK
     Route: 048
  2. CELEBREX [Concomitant]
  3. ANAPROX [Concomitant]

REACTIONS (2)
  - Overdose [None]
  - Incorrect drug administration duration [None]
